FAERS Safety Report 21850147 (Version 1)
Quarter: 2023Q1

REPORT INFORMATION
  Report Type: Spontaneous
  Country: US (occurrence: None)
  Receive Date: 20230111
  Receipt Date: 20230111
  Transmission Date: 20230417
  Serious: Yes (Life-Threatening)
  Sender: FDA-Public Use
  Company Number: None

PATIENT
  Age: 52 Year
  Sex: Female
  Weight: 83.25 kg

DRUGS (10)
  1. RIZATRIPTAN BENZOATE [Suspect]
     Active Substance: RIZATRIPTAN BENZOATE
     Indication: Migraine
     Dosage: OTHER QUANTITY : 18 TABLET(S);?OTHER FREQUENCY : USE 1 TABLET;?
     Route: 048
  2. DULOXETINE [Concomitant]
     Active Substance: DULOXETINE
  3. LAMOTRIIGINE [Concomitant]
  4. BUS PRONE [Concomitant]
  5. ATENOLOL [Concomitant]
     Active Substance: ATENOLOL
  6. TRAZODONE [Concomitant]
     Active Substance: TRAZODONE HYDROCHLORIDE
  7. AMITRIPTYLINE [Concomitant]
     Active Substance: AMITRIPTYLINE
  8. FREMANEZUMAB [Concomitant]
     Active Substance: FREMANEZUMAB
  9. AJOVY [Concomitant]
     Active Substance: FREMANEZUMAB-VFRM
  10. VITA FUSION  MULTI VITAMIN [Concomitant]

REACTIONS (9)
  - Fatigue [None]
  - Rash pruritic [None]
  - Throat tightness [None]
  - Dyspnoea [None]
  - Oxygen saturation decreased [None]
  - Blood pressure increased [None]
  - Insomnia [None]
  - No reaction on previous exposure to drug [None]
  - Product quality issue [None]

NARRATIVE: CASE EVENT DATE: 20230110
